FAERS Safety Report 4442888-4 (Version None)
Quarter: 2004Q3

REPORT INFORMATION
  Report Type: 
  Country: None (occurrence: None)
  Receive Date: 20040907
  Receipt Date: 20040907
  Transmission Date: 20050211
  Serious: Yes (Other)
  Sender: FDA-Public Use
  Company Number: None

PATIENT
  Sex: Female

DRUGS (2)
  1. HYDROCODONE/APAP ES [Suspect]
     Indication: PAIN
  2. HYDROCODONE/APAP ES [Suspect]
     Indication: SPONDYLOSIS

REACTIONS (2)
  - HEADACHE [None]
  - PHARMACEUTICAL PRODUCT COMPLAINT [None]
